FAERS Safety Report 16891007 (Version 1)
Quarter: 2019Q4

REPORT INFORMATION
  Report Type: Report from Study
  Country: US (occurrence: US)
  Receive Date: 20191007
  Receipt Date: 20191007
  Transmission Date: 20200122
  Serious: No
  Sender: FDA-Public Use
  Company Number: US-EMD SERONO-9108399

PATIENT
  Age: 48 Year
  Sex: Female

DRUGS (1)
  1. MAVENCLAD [Suspect]
     Active Substance: CLADRIBINE
     Indication: MULTIPLE SCLEROSIS
     Dosage: FIRST ROUND THERAPY: TWO TABLETS ON FIRST DAY AND ONE TABLET ON THE NEXT FOUR DAYS.
     Route: 048
     Dates: start: 20190722

REACTIONS (2)
  - Feeling hot [Unknown]
  - Headache [Unknown]

NARRATIVE: CASE EVENT DATE: 201907
